FAERS Safety Report 25631937 (Version 2)
Quarter: 2025Q3

REPORT INFORMATION
  Report Type: Report from Study
  Country: AU (occurrence: AU)
  Receive Date: 20250801
  Receipt Date: 20250821
  Transmission Date: 20251021
  Serious: Yes (Hospitalization)
  Sender: ROCHE
  Company Number: AU-ROCHE-10000353771

PATIENT
  Age: 46 Year
  Sex: Female

DRUGS (4)
  1. OCREVUS [Suspect]
     Active Substance: OCRELIZUMAB
     Indication: Relapsing-remitting multiple sclerosis
     Route: 042
     Dates: start: 20230803
  2. VALIUM [Concomitant]
     Active Substance: DIAZEPAM
  3. OXYCODONE HYDROCHLORIDE [Concomitant]
     Active Substance: OXYCODONE HYDROCHLORIDE
  4. OLMEKAR [Concomitant]
     Dosage: DOSE: 1 TABLET?OLMESARTAN MEDOXOMIL 20MG -AMLODIPINE 5MG COATED TABLET (OLMEKAR 20/5 TABLETS) (20?MG

REACTIONS (3)
  - Neck pain [Recovering/Resolving]
  - Spinal osteoarthritis [Unknown]
  - Malaise [Recovered/Resolved]

NARRATIVE: CASE EVENT DATE: 20250725
